FAERS Safety Report 18059485 (Version 5)
Quarter: 2020Q3

REPORT INFORMATION
  Report Type: Spontaneous
  Country: US (occurrence: US)
  Receive Date: 20200723
  Receipt Date: 20200921
  Transmission Date: 20201103
  Serious: Yes (Other)
  Sender: FDA-Public Use
  Company Number: US-PFIZER INC-2020280014

PATIENT
  Age: 66 Year
  Sex: Female

DRUGS (1)
  1. LYRICA [Suspect]
     Active Substance: PREGABALIN
     Dosage: UNK

REACTIONS (7)
  - Pain [Unknown]
  - Nerve injury [Unknown]
  - Suicidal ideation [Unknown]
  - Frustration tolerance decreased [Unknown]
  - Road traffic accident [Unknown]
  - Fibromyalgia [Unknown]
  - Hypoaesthesia [Unknown]
